FAERS Safety Report 5718939-3 (Version None)
Quarter: 2008Q2

REPORT INFORMATION
  Report Type: 
  Country: None (occurrence: None)
  Receive Date: 20080425
  Receipt Date: 20080416
  Transmission Date: 20081010
  Serious: Yes (Life-Threatening, Hospitalization, Other)
  Sender: FDA-Public Use
  Company Number: US-MERCK-0804USA00634

PATIENT
  Age: 15 Year
  Sex: Male
  Weight: 85 kg

DRUGS (10)
  1. SINGULAIR [Suspect]
     Indication: ASTHMA
     Route: 048
     Dates: start: 19950101
  2. SINGULAIR [Suspect]
     Route: 048
  3. SINGULAIR [Suspect]
     Indication: NASAL CONGESTION
     Route: 048
     Dates: start: 19950101
  4. SINGULAIR [Suspect]
     Route: 048
  5. ZYRTEC [Concomitant]
     Indication: RHINITIS ALLERGIC
     Route: 065
     Dates: start: 19980101
  6. ASMANEX TWISTHALER [Concomitant]
     Indication: ASTHMA
     Route: 065
     Dates: start: 20060401
  7. DEPAKOTE [Concomitant]
     Route: 065
     Dates: start: 20040101
  8. ZYPREXA [Concomitant]
     Route: 065
     Dates: end: 20070101
  9. ATARAX [Concomitant]
     Indication: RHINITIS ALLERGIC
     Route: 065
     Dates: start: 19980101
  10. [THERAPY UNSPECIFIED] [Concomitant]
     Indication: ASTHMA
     Route: 065
     Dates: start: 20030501

REACTIONS (3)
  - DEPRESSION [None]
  - INSOMNIA [None]
  - SUICIDE ATTEMPT [None]
